FAERS Safety Report 16197098 (Version 2)
Quarter: 2019Q2

REPORT INFORMATION
  Report Type: Spontaneous
  Country: JP (occurrence: JP)
  Receive Date: 20190415
  Receipt Date: 20190524
  Transmission Date: 20190711
  Serious: Yes (Hospitalization)
  Sender: FDA-Public Use
  Company Number: JP-ROCHE-2304243

PATIENT
  Age: 62 Year
  Sex: Female
  Weight: 40 kg

DRUGS (3)
  1. ACTEMRA [Suspect]
     Active Substance: TOCILIZUMAB
     Indication: RHEUMATOID ARTHRITIS
     Route: 041
     Dates: start: 20161115, end: 20180329
  2. ACTEMRA [Suspect]
     Active Substance: TOCILIZUMAB
     Route: 041
     Dates: start: 20180426, end: 20190328
  3. EDIROL [Concomitant]
     Active Substance: ELDECALCITOL
     Dosage: DOSAGE IS UNCERTAIN.
     Route: 048
     Dates: start: 20181108, end: 20190328

REACTIONS (1)
  - Subarachnoid haemorrhage [Recovering/Resolving]

NARRATIVE: CASE EVENT DATE: 20190406
